FAERS Safety Report 7394810-9 (Version None)
Quarter: 2011Q2

REPORT INFORMATION
  Report Type: 
  Country: None (occurrence: None)
  Receive Date: 20110405
  Receipt Date: 20110329
  Transmission Date: 20111010
  Serious: Yes (Death, Hospitalization)
  Sender: FDA-Public Use
  Company Number: A0773222A

PATIENT
  Age: 81 Year
  Sex: Female
  Weight: 85.9 kg

DRUGS (6)
  1. LASIX [Concomitant]
  2. AVANDIA [Suspect]
     Indication: DIABETES MELLITUS
     Dosage: 4MG PER DAY
     Route: 048
     Dates: start: 20010101, end: 20060101
  3. ATENOLOL [Concomitant]
  4. LIPITOR [Concomitant]
  5. ZOCOR [Concomitant]
  6. INSULIN [Concomitant]

REACTIONS (6)
  - CARDIAC ARREST [None]
  - CARDIAC HYPERTROPHY [None]
  - PULMONARY OEDEMA [None]
  - CARDIAC DISORDER [None]
  - CEREBROVASCULAR ACCIDENT [None]
  - CEREBRAL INFARCTION [None]
